FAERS Safety Report 21456429 (Version 1)
Quarter: 2022Q4

REPORT INFORMATION
  Report Type: Spontaneous
  Country: None (occurrence: US)
  Receive Date: 20221014
  Receipt Date: 20221014
  Transmission Date: 20230113
  Serious: No
  Sender: FDA-Public Use
  Company Number: US-Ascent Pharmaceuticals, Inc.-2133821

PATIENT

DRUGS (1)
  1. DEXTROAMPHET SACCHARAT, AMPHET ASPARTATE, DEXTROAMPHET SULFATE AND AMP [Suspect]
     Active Substance: AMPHETAMINE ASPARTATE\AMPHETAMINE SULFATE\DEXTROAMPHETAMINE SACCHARATE\DEXTROAMPHETAMINE SULFATE
     Indication: Product used for unknown indication
     Route: 048

REACTIONS (18)
  - Fatigue [Unknown]
  - Somnolence [Unknown]
  - Feeling jittery [Unknown]
  - Anxiety [Unknown]
  - Feeling abnormal [Unknown]
  - Apathy [Unknown]
  - Disturbance in attention [Unknown]
  - Increased upper airway secretion [Unknown]
  - Nausea [Unknown]
  - Psoriasis [Unknown]
  - Blepharospasm [Unknown]
  - Bruxism [Unknown]
  - Drug ineffective [Unknown]
  - Product quality issue [Unknown]
  - Product substitution issue [Unknown]
  - Irritability [Unknown]
  - Depression [Unknown]
  - Dry mouth [Unknown]
